FAERS Safety Report 18742064 (Version 3)
Quarter: 2021Q1

REPORT INFORMATION
  Report Type: Report from Study
  Country: CO (occurrence: CO)
  Receive Date: 20210114
  Receipt Date: 20210303
  Transmission Date: 20210419
  Serious: Yes (Hospitalization, Other)
  Sender: FDA-Public Use
  Company Number: CO-BAYER-2020-276785

PATIENT
  Age: 79 Year
  Sex: Female

DRUGS (4)
  1. ADEMPAS [Suspect]
     Active Substance: RIOCIGUAT
     Indication: PULMONARY HYPERTENSION
     Dosage: 1.0 MG, Q8HR
     Route: 048
     Dates: start: 20201125
  2. ADEMPAS [Suspect]
     Active Substance: RIOCIGUAT
     Indication: PULMONARY HYPERTENSION
     Dosage: 2.5 MG, Q8HR
     Dates: end: 20210224
  3. ADEMPAS [Suspect]
     Active Substance: RIOCIGUAT
     Indication: PULMONARY HYPERTENSION
     Dosage: 2 MG, Q8HR
     Dates: start: 20201125
  4. ADEMPAS [Suspect]
     Active Substance: RIOCIGUAT
     Indication: PULMONARY HYPERTENSION
     Dosage: 2.0 MG, Q8HR
     Dates: start: 20210225

REACTIONS (8)
  - Diarrhoea [Unknown]
  - Syncope [Recovering/Resolving]
  - Product prescribing issue [None]
  - Drug dose titration not performed [Unknown]
  - Blood pressure decreased [Recovering/Resolving]
  - Drug dose titration not performed [None]
  - Product dose omission issue [None]
  - Cardiac failure [Not Recovered/Not Resolved]

NARRATIVE: CASE EVENT DATE: 2020
